FAERS Safety Report 7706304-9 (Version None)
Quarter: 2011Q3

REPORT INFORMATION
  Report Type: 
  Country: None (occurrence: None)
  Receive Date: 20110824
  Receipt Date: 20110817
  Transmission Date: 20111222
  Serious: Yes (Death)
  Sender: FDA-Public Use
  Company Number: CA-ROCHE-797882

PATIENT
  Sex: Female

DRUGS (4)
  1. OXYTOCIN [Concomitant]
  2. OXYCODONE HCL [Concomitant]
  3. PREDNISONE [Concomitant]
  4. TOCILIZUMAB [Suspect]
     Indication: RHEUMATOID ARTHRITIS
     Dosage: FREQUENCY: 4 WEEKS
     Route: 042
     Dates: start: 20101115, end: 20110530

REACTIONS (3)
  - INTESTINAL PERFORATION [None]
  - CEREBROVASCULAR ACCIDENT [None]
  - HEART VALVE INCOMPETENCE [None]
